FAERS Safety Report 7962301-X (Version None)
Quarter: 2011Q4

REPORT INFORMATION
  Report Type: 
  Country: None (occurrence: None)
  Receive Date: 20111207
  Receipt Date: 20111205
  Transmission Date: 20120403
  Serious: Yes (Death, Hospitalization, Other)
  Sender: FDA-Public Use
  Company Number: PHEH2008US10678

PATIENT
  Sex: Male

DRUGS (5)
  1. COUMADIN [Suspect]
  2. LOVENOX [Concomitant]
  3. ZOMETA [Suspect]
     Indication: MULTIPLE MYELOMA
  4. PRILOSEC [Concomitant]
  5. OXYCODONE HCL [Concomitant]

REACTIONS (44)
  - MASTICATION DISORDER [None]
  - INJURY [None]
  - GASTROOESOPHAGEAL REFLUX DISEASE [None]
  - CONFUSIONAL STATE [None]
  - VITAMIN B COMPLEX DEFICIENCY [None]
  - INSOMNIA [None]
  - PAIN [None]
  - PULMONARY EMBOLISM [None]
  - INGUINAL HERNIA [None]
  - APLASTIC ANAEMIA [None]
  - WEIGHT DECREASED [None]
  - BLOOD PRESSURE INCREASED [None]
  - RENAL FAILURE [None]
  - DYSPNOEA [None]
  - DEATH [None]
  - HYPONATRAEMIA [None]
  - METABOLIC ENCEPHALOPATHY [None]
  - EXPOSED BONE IN JAW [None]
  - PHYSICAL DISABILITY [None]
  - DEEP VEIN THROMBOSIS [None]
  - URINARY INCONTINENCE [None]
  - DECREASED APPETITE [None]
  - FAILURE TO THRIVE [None]
  - COAGULOPATHY [None]
  - DEPRESSION [None]
  - BACK PAIN [None]
  - ACTIVITIES OF DAILY LIVING IMPAIRED [None]
  - ANHEDONIA [None]
  - MENTAL STATUS CHANGES [None]
  - EMOTIONAL DISTRESS [None]
  - ANXIETY [None]
  - LIFE EXPECTANCY SHORTENED [None]
  - ROTATOR CUFF SYNDROME [None]
  - DYSPHAGIA [None]
  - HYPOKALAEMIA [None]
  - ASTHENIA [None]
  - OSTEONECROSIS OF JAW [None]
  - OVERDOSE [None]
  - DISCOMFORT [None]
  - DEFORMITY [None]
  - QUALITY OF LIFE DECREASED [None]
  - OSTEOMA [None]
  - BARRETT'S OESOPHAGUS [None]
  - THROMBOCYTOPENIA [None]
